FAERS Safety Report 17296808 (Version 1)
Quarter: 2020Q1

REPORT INFORMATION
  Report Type: Spontaneous
  Country: GB (occurrence: GB)
  Receive Date: 20200122
  Receipt Date: 20200122
  Transmission Date: 20200409
  Serious: Yes (Other)
  Sender: FDA-Public Use
  Company Number: GB-TEVA-2020-GB-1170806

PATIENT
  Age: 69 Year
  Sex: Male
  Weight: 82.55 kg

DRUGS (3)
  1. TETRACYCLINE [Concomitant]
     Active Substance: TETRACYCLINE
     Dosage: 2000 MG PER DAY
  2. LEVOFLOXACIN. [Suspect]
     Active Substance: LEVOFLOXACIN
     Indication: HELICOBACTER INFECTION
     Dosage: 500 MG PER DAY
     Route: 048
     Dates: start: 20190905, end: 20190914
  3. LANSOPRAZOLE. [Concomitant]
     Active Substance: LANSOPRAZOLE
     Dosage: 30 MG

REACTIONS (1)
  - Tendon pain [Recovering/Resolving]

NARRATIVE: CASE EVENT DATE: 20190905
